FAERS Safety Report 17911036 (Version 3)
Quarter: 2020Q4

REPORT INFORMATION
  Report Type: Spontaneous
  Country: US (occurrence: US)
  Receive Date: 20200618
  Receipt Date: 20201217
  Transmission Date: 20210113
  Serious: Yes (Hospitalization)
  Sender: FDA-Public Use
  Company Number: US-SHIRE-US202019890

PATIENT
  Sex: Female
  Weight: 89.34 kg

DRUGS (21)
  1. GAMMAGARD LIQUID [Suspect]
     Active Substance: HUMAN IMMUNOGLOBULIN G
     Indication: ASTHMA
     Dosage: 30 GRAM, 1X/2WKS
     Route: 058
     Dates: start: 20190525
  2. TOBI [Concomitant]
     Active Substance: TOBRAMYCIN
  3. AMBIEN [Concomitant]
     Active Substance: ZOLPIDEM TARTRATE
  4. ZOLOFT [Concomitant]
     Active Substance: SERTRALINE HYDROCHLORIDE
  5. CLARITIN [Concomitant]
     Active Substance: LORATADINE
  6. CALCIUM [Concomitant]
     Active Substance: CALCIUM
  7. CENTRUM [Concomitant]
     Active Substance: VITAMINS
  8. VITAMIN D3 [Concomitant]
     Active Substance: CHOLECALCIFEROL
  9. METOPROLOL SUCCINATE. [Concomitant]
     Active Substance: METOPROLOL SUCCINATE
  10. LMX [Concomitant]
  11. DIPHENHYDRAMINE. [Concomitant]
     Active Substance: DIPHENHYDRAMINE
  12. EPINEPHRINE. [Concomitant]
     Active Substance: EPINEPHRINE
  13. VENTOLIN [Concomitant]
     Active Substance: ALBUTEROL SULFATE
  14. METOPROLOL. [Concomitant]
     Active Substance: METOPROLOL
  15. GAMMAGARD LIQUID [Suspect]
     Active Substance: HUMAN IMMUNOGLOBULIN G
     Indication: IMMUNODEFICIENCY COMMON VARIABLE
     Dosage: 30 GRAM, 1X/2WKS
     Route: 058
     Dates: start: 20170615
  16. ACETAMINOPHEN. [Concomitant]
     Active Substance: ACETAMINOPHEN
  17. SPIRIVA [Concomitant]
     Active Substance: TIOTROPIUM BROMIDE MONOHYDRATE
  18. CLARITIN-D NOS [Concomitant]
     Active Substance: LORATADINE\PSEUDOEPHEDRINE SULFATE
  19. CALCIUM MAGNESIUM [CALCIUM;MAGNESIUM] [Concomitant]
  20. SINGULAIR [Concomitant]
     Active Substance: MONTELUKAST SODIUM
  21. DULERA [Concomitant]
     Active Substance: FORMOTEROL FUMARATE DIHYDRATE\MOMETASONE FUROATE

REACTIONS (9)
  - Intervertebral disc compression [Unknown]
  - Swelling [Unknown]
  - Erythema [Unknown]
  - Product dose omission issue [Unknown]
  - Sinusitis [Unknown]
  - COVID-19 [Unknown]
  - Memory impairment [Unknown]
  - Urinary tract infection [Unknown]
  - Intervertebral disc protrusion [Unknown]
